FAERS Safety Report 10258559 (Version 3)
Quarter: 2015Q1

REPORT INFORMATION
  Report Type: Report from Study
  Country: BR (occurrence: BR)
  Receive Date: 20140625
  Receipt Date: 20150115
  Transmission Date: 20150720
  Serious: Yes (Other)
  Sender: FDA-Public Use
  Company Number: PHHY2014BR077931

PATIENT
  Age: 59 Year
  Sex: Male
  Weight: 72 kg

DRUGS (7)
  1. EXJADE [Suspect]
     Active Substance: DEFERASIROX
     Dosage: 500 MG, DAILY
     Route: 048
     Dates: start: 20140613
  2. EXJADE [Suspect]
     Active Substance: DEFERASIROX
     Indication: IRON OVERLOAD
     Dosage: 500 MG, DAILY
     Route: 048
     Dates: start: 201310
  3. EXJADE [Suspect]
     Active Substance: DEFERASIROX
     Dosage: 1000 MG, DAILY
     Route: 048
     Dates: start: 201311
  4. EXJADE [Suspect]
     Active Substance: DEFERASIROX
     Dosage: 250 MG, DAILY
     Route: 048
     Dates: start: 20140508, end: 20140612
  5. EXJADE [Suspect]
     Active Substance: DEFERASIROX
     Dosage: 100 MG, UNK
     Route: 048
  6. EXJADE [Suspect]
     Active Substance: DEFERASIROX
     Dosage: 1500 MG, DAILY
     Route: 048
     Dates: start: 201310, end: 201311
  7. EXJADE [Suspect]
     Active Substance: DEFERASIROX
     Dosage: 1250 MG (2X500MG AND 1X250MG), QD
     Route: 048

REACTIONS (8)
  - Pallor [Recovered/Resolved]
  - Blood creatinine increased [Recovered/Resolved]
  - Vomiting [Recovered/Resolved]
  - Anaemia [Unknown]
  - Drug intolerance [Unknown]
  - Memory impairment [Recovered/Resolved]
  - Serum ferritin increased [Not Recovered/Not Resolved]
  - Confusional state [Recovered/Resolved]

NARRATIVE: CASE EVENT DATE: 201311
